FAERS Safety Report 8743431 (Version 2)
Quarter: 2012Q4

REPORT INFORMATION
  Report Type: 
  Country: US (occurrence: US)
  Receive Date: 20120824
  Receipt Date: 20121019
  Transmission Date: 20130627
  Serious: Yes (Other)
  Sender: FDA-Public Use
  Company Number: US-JNJFOC-20120809533

PATIENT
  Age: 74 None
  Sex: Male
  Weight: 87.09 kg

DRUGS (10)
  1. XARELTO [Suspect]
     Indication: CEREBROVASCULAR ACCIDENT PROPHYLAXIS
     Route: 048
     Dates: end: 20120820
  2. XARELTO [Suspect]
     Indication: CEREBROVASCULAR ACCIDENT PROPHYLAXIS
     Route: 048
     Dates: start: 20120719
  3. XARELTO [Suspect]
     Indication: ATRIAL FIBRILLATION
     Route: 048
     Dates: start: 20120719
  4. XARELTO [Suspect]
     Indication: ATRIAL FIBRILLATION
     Route: 048
     Dates: end: 20120820
  5. LISINOPRIL [Concomitant]
     Indication: HYPERTENSION
  6. DIGOXIN [Concomitant]
     Indication: HEART RATE INCREASED
  7. LIPITOR [Concomitant]
     Indication: BLOOD CHOLESTEROL
  8. AMIODARONE [Concomitant]
     Indication: ATRIAL FIBRILLATION
     Dates: start: 20100705
  9. METOPROLOL [Concomitant]
     Indication: ATRIAL FIBRILLATION
     Dates: start: 20111202
  10. BABY ASPIRIN [Concomitant]

REACTIONS (4)
  - Haemorrhage [Recovered/Resolved]
  - Urethral stenosis [Recovered/Resolved]
  - Blood urine present [Recovered/Resolved]
  - Post procedural haemorrhage [Recovered/Resolved]
